FAERS Safety Report 6145110-6 (Version None)
Quarter: 2009Q2

REPORT INFORMATION
  Report Type: 
  Country: None (occurrence: None)
  Receive Date: 20090402
  Receipt Date: 20090402
  Transmission Date: 20091009
  Serious: Yes (Life-Threatening, Hospitalization, Disabling, Other)
  Sender: FDA-Public Use
  Company Number: None

PATIENT
  Age: 18 Year
  Sex: Female
  Weight: 56.6996 kg

DRUGS (2)
  1. MIRENA [Suspect]
     Indication: PREGNANCY
     Dosage: ONE TIME- INTRA-UTERINE ONE TIME VAG
     Route: 015
     Dates: start: 20070207, end: 20070725
  2. MIRENA [Suspect]
     Dosage: ONE TIME VAG
     Route: 067

REACTIONS (14)
  - ABASIA [None]
  - ABDOMINAL PAIN [None]
  - ABSCESS [None]
  - ANOREXIA [None]
  - FATIGUE [None]
  - HAEMORRHAGE [None]
  - IUCD COMPLICATION [None]
  - MUSCLE SPASMS [None]
  - OVARIAN CYST [None]
  - PAIN [None]
  - PRODUCT QUALITY ISSUE [None]
  - SYNCOPE [None]
  - VAGINAL DISCHARGE [None]
  - VOMITING [None]
